FAERS Safety Report 12168354 (Version 3)
Quarter: 2017Q2

REPORT INFORMATION
  Report Type: Report from Study
  Country: JP (occurrence: JP)
  Receive Date: 20160310
  Receipt Date: 20170609
  Transmission Date: 20170830
  Serious: Yes (Hospitalization, Other)
  Sender: FDA-Public Use
  Company Number: JP-AMGEN-JPNNI2016030226

PATIENT
  Age: 80 Year
  Sex: Female

DRUGS (1)
  1. DARBEPOETIN ALFA [Suspect]
     Active Substance: DARBEPOETIN ALFA
     Indication: PRODUCT USED FOR UNKNOWN INDICATION
     Dosage: UNK
     Route: 042
     Dates: start: 20150601, end: 20150629

REACTIONS (8)
  - Bronchitis [Unknown]
  - Pyrexia [Recovering/Resolving]
  - Hospitalisation [Unknown]
  - Confusional state [Recovering/Resolving]
  - Thrombosis in device [Unknown]
  - Pleural effusion [Unknown]
  - Mental status changes [Recovering/Resolving]
  - Chills [Recovering/Resolving]

NARRATIVE: CASE EVENT DATE: 20150619
